FAERS Safety Report 16963227 (Version 1)
Quarter: 2019Q4

REPORT INFORMATION
  Report Type: Spontaneous
  Country: US (occurrence: US)
  Receive Date: 20190908
  Receipt Date: 20190908
  Transmission Date: 20200122
  Serious: No
  Sender: FDA-Public Use
  Company Number: None

PATIENT
  Age: 72 Year
  Sex: Female

DRUGS (1)
  1. IBRANCE [Suspect]
     Active Substance: PALBOCICLIB
     Indication: BREAST CANCER
     Route: 048
     Dates: start: 201908, end: 20190830

REACTIONS (5)
  - Dyspnoea [None]
  - Stomatitis [None]
  - Pharyngeal swelling [None]
  - Decreased appetite [None]
  - Alopecia [None]
